FAERS Safety Report 5185654-7 (Version None)
Quarter: 2006Q4

REPORT INFORMATION
  Report Type: 
  Country: None (occurrence: None)
  Receive Date: 20061220
  Receipt Date: 20060821
  Transmission Date: 20070319
  Serious: No
  Sender: FDA-Public Use
  Company Number: US-GLAXOSMITHKLINE-A0617404A

PATIENT
  Age: 64 Year
  Sex: Female

DRUGS (2)
  1. NICODERM CQ [Suspect]
     Dates: start: 20060808, end: 20060810
  2. NICORETTE [Suspect]

REACTIONS (5)
  - ABNORMAL DREAMS [None]
  - APPLICATION SITE REACTION [None]
  - DRUG INEFFECTIVE [None]
  - MALAISE [None]
  - NICOTINE DEPENDENCE [None]
